FAERS Safety Report 13407218 (Version 2)
Quarter: 2017Q3

REPORT INFORMATION
  Report Type: Report from Study
  Country: US (occurrence: US)
  Receive Date: 20170405
  Receipt Date: 20170721
  Transmission Date: 20171127
  Serious: Yes (Hospitalization, Other)
  Sender: FDA-Public Use
  Company Number: US-ACTELION-A-NJ2016-132590

PATIENT
  Age: 68 Year
  Sex: Male
  Weight: 81.63 kg

DRUGS (3)
  1. OPSUMIT [Suspect]
     Active Substance: MACITENTAN
     Indication: PULMONARY ARTERIAL HYPERTENSION
     Dosage: 10 MG, QD
     Route: 048
     Dates: start: 20140210
  2. SILDENAFIL. [Concomitant]
     Active Substance: SILDENAFIL
     Indication: PULMONARY ARTERIAL HYPERTENSION
  3. REMODULIN [Concomitant]
     Active Substance: TREPROSTINIL
     Route: 042

REACTIONS (10)
  - Hypoxia [Unknown]
  - Nasopharyngitis [Unknown]
  - Fluid retention [Unknown]
  - Oedema [Unknown]
  - Transplant [Unknown]
  - Laryngitis [Unknown]
  - Heart valve replacement [Unknown]
  - Condition aggravated [Unknown]
  - Bronchitis [Unknown]
  - Pulmonary arterial hypertension [Unknown]
